FAERS Safety Report 4929335-0 (Version None)
Quarter: 2006Q1

REPORT INFORMATION
  Report Type: 
  Country: None (occurrence: None)
  Receive Date: 20060223
  Receipt Date: 20060130
  Transmission Date: 20060701
  Serious: No
  Sender: FDA-Public Use
  Company Number: US_0509121943

PATIENT
  Sex: Male
  Weight: 73.5 kg

DRUGS (6)
  1. ZYPREXA [Suspect]
     Dosage: 10 MG, ORAL
     Route: 048
     Dates: start: 19980101
  2. RISPERIDONE [Concomitant]
  3. ZIPRASIDONE (ZIPRASIDONE) [Concomitant]
  4. LUVOX [Concomitant]
  5. LEXAPRO /USA/ (ESCITALOPRAM) [Concomitant]
  6. GEMFIBROZIL [Concomitant]

REACTIONS (2)
  - DIABETES MELLITUS NON-INSULIN-DEPENDENT [None]
  - RECTAL HAEMORRHAGE [None]
